FAERS Safety Report 20008756 (Version 1)
Quarter: 2021Q4

REPORT INFORMATION
  Report Type: Spontaneous
  Country: US (occurrence: US)
  Receive Date: 20211028
  Receipt Date: 20211028
  Transmission Date: 20220304
  Serious: Yes (Other)
  Sender: FDA-Public Use
  Company Number: US-BAYER-2021A234061

PATIENT
  Age: 31 Year
  Sex: Male
  Weight: 68.03 kg

DRUGS (3)
  1. MIRALAX [Suspect]
     Active Substance: POLYETHYLENE GLYCOL 3350
     Dosage: UNK
     Dates: start: 202103
  2. NATUREMADE ESSENTIAL BALANCE [Concomitant]
     Dosage: 1 DF, QD
     Route: 048
     Dates: start: 202103, end: 202108
  3. ANTIHISMINE [Concomitant]
     Dosage: UNK
     Dates: start: 202103

REACTIONS (3)
  - Neuropathy peripheral [Unknown]
  - Burning sensation [Unknown]
  - Nerve injury [Unknown]
